FAERS Safety Report 8233311-2 (Version None)
Quarter: 2012Q1

REPORT INFORMATION
  Report Type: 
  Country: None (occurrence: None)
  Receive Date: 20120323
  Receipt Date: 20120323
  Transmission Date: 20120608
  Serious: Yes (Other)
  Sender: FDA-Public Use
  Company Number: None

PATIENT
  Age: 63 Year
  Sex: Female
  Weight: 81.6475 kg

DRUGS (2)
  1. PREMARIN [Suspect]
     Indication: HYSTERECTOMY
     Dosage: 1X DAY 1X DAY
     Dates: start: 19850101
  2. LORATADINE [Suspect]
     Indication: HYPERSENSITIVITY
     Dosage: 10 MG ONCE DAILY   1 X DAY
     Dates: start: 19850101

REACTIONS (6)
  - PAIN [None]
  - INCISION SITE PAIN [None]
  - DIZZINESS [None]
  - PHOTOPSIA [None]
  - DRUG INEFFECTIVE [None]
  - PRODUCT TAMPERING [None]
